FAERS Safety Report 9718989 (Version 1)
Quarter: 2013Q4

REPORT INFORMATION
  Report Type: Spontaneous
  Country: US (occurrence: US)
  Receive Date: 20131127
  Receipt Date: 20131127
  Transmission Date: 20140711
  Serious: Yes (Other)
  Sender: FDA-Public Use
  Company Number: US-ABBVIE-13P-163-1171217-00

PATIENT
  Age: 24 Year
  Sex: Male

DRUGS (7)
  1. HUMIRA [Suspect]
     Indication: CROHN^S DISEASE
  2. STEROIDS [Suspect]
     Indication: CROHN^S DISEASE
  3. AZATHIOPRINE [Suspect]
     Indication: CROHN^S DISEASE
  4. METHOTREXATE [Suspect]
     Indication: CROHN^S DISEASE
  5. INFLIXIMAB [Suspect]
     Indication: CROHN^S DISEASE
  6. CERTOLIZUMAB [Suspect]
     Indication: CROHN^S DISEASE
  7. NATALIZUMAB [Suspect]
     Indication: CROHN^S DISEASE

REACTIONS (3)
  - Immunosuppression [Unknown]
  - Hepatocellular carcinoma [Unknown]
  - Drug ineffective [Unknown]
